FAERS Safety Report 24359236 (Version 1)
Quarter: 2024Q3

REPORT INFORMATION
  Report Type: Spontaneous
  Country: US (occurrence: US)
  Receive Date: 20240924
  Receipt Date: 20240924
  Transmission Date: 20241017
  Serious: No
  Sender: Unknown Manufacturer
  Company Number: US-ROCHE-3536483

PATIENT

DRUGS (2)
  1. GAVRETO [Suspect]
     Active Substance: PRALSETINIB
     Indication: Non-small cell lung cancer
  2. RETEVMO [Concomitant]
     Active Substance: SELPERCATINIB
     Indication: Non-small cell lung cancer

REACTIONS (1)
  - Electrocardiogram QT prolonged [Recovered/Resolved]
